FAERS Safety Report 8503043 (Version 2)
Quarter: 2012Q4

REPORT INFORMATION
  Report Type: Report from Study
  Country: JP (occurrence: JP)
  Receive Date: 20120411
  Receipt Date: 20121129
  Transmission Date: 20130627
  Serious: Yes (Hospitalization)
  Sender: FDA-Public Use
  Company Number: JP-JNJFOC-20120401967

PATIENT
  Age: 60 Year
  Sex: Female
  Weight: 64 kg

DRUGS (15)
  1. REMICADE [Suspect]
     Indication: RHEUMATOID ARTHRITIS
     Route: 042
     Dates: start: 20101209
  2. REMICADE [Suspect]
     Indication: RHEUMATOID ARTHRITIS
     Route: 042
     Dates: start: 20100121
  3. REMICADE [Suspect]
     Indication: RHEUMATOID ARTHRITIS
     Route: 042
     Dates: start: 20110210
  4. REMICADE [Suspect]
     Indication: RHEUMATOID ARTHRITIS
     Dosage: 10 infusions total
     Route: 042
     Dates: start: 20110407
  5. PREDNISOLONE [Concomitant]
     Route: 048
     Dates: start: 20110210, end: 20110630
  6. CELECOX [Concomitant]
     Indication: RHEUMATOID ARTHRITIS
     Route: 048
     Dates: start: 20110728
  7. MUCOSTA [Concomitant]
     Indication: RHEUMATOID ARTHRITIS
     Dates: start: 20110728
  8. METHOTREXATE [Concomitant]
     Route: 048
     Dates: start: 20090131
  9. METHOTREXATE [Concomitant]
     Route: 048
     Dates: start: 20110728
  10. BACTRAMIN [Concomitant]
     Indication: RHEUMATOID ARTHRITIS
     Dosage: dosage: 1 tablet
     Route: 048
     Dates: start: 20110728
  11. OMEPRAZOLE [Concomitant]
     Indication: RHEUMATOID ARTHRITIS
     Route: 048
     Dates: start: 20110728
  12. MOBIC [Concomitant]
     Indication: RHEUMATOID ARTHRITIS
     Route: 048
     Dates: start: 20110728
  13. FOLIAMIN [Concomitant]
     Indication: RHEUMATOID ARTHRITIS
     Dates: start: 20110728
  14. BENET [Concomitant]
     Indication: RHEUMATOID ARTHRITIS
     Route: 048
     Dates: start: 20110728
  15. RIMATIL [Concomitant]
     Indication: RHEUMATOID ARTHRITIS
     Route: 048
     Dates: start: 20110728

REACTIONS (1)
  - Breast cancer [Unknown]
